FAERS Safety Report 7383782-9 (Version None)
Quarter: 2011Q1

REPORT INFORMATION
  Report Type: 
  Country: None (occurrence: None)
  Receive Date: 20110328
  Receipt Date: 20110328
  Transmission Date: 20110831
  Serious: Yes (Hospitalization)
  Sender: FDA-Public Use
  Company Number: None

PATIENT
  Age: 80 Year
  Sex: Male
  Weight: 109.7705 kg

DRUGS (10)
  1. PRADAXA [Suspect]
     Indication: ATRIAL FIBRILLATION
     Dosage: 75MG BID PO AT LEAST 3 WEEKS
     Route: 048
  2. KLOR-CON [Concomitant]
  3. SIMVASTATIN [Concomitant]
  4. LISINOPRIL [Concomitant]
  5. BYSTOLIC [Concomitant]
  6. BUMEX [Concomitant]
  7. ACETAMINOPHEN [Concomitant]
  8. LIDODERM [Concomitant]
  9. COLACE [Concomitant]
  10. COLCHICINE [Concomitant]

REACTIONS (1)
  - GASTROINTESTINAL HAEMORRHAGE [None]
